FAERS Safety Report 23747861 (Version 1)
Quarter: 2024Q2

REPORT INFORMATION
  Report Type: Spontaneous
  Country: US (occurrence: None)
  Receive Date: 20240415
  Receipt Date: 20240415
  Transmission Date: 20240716
  Serious: No
  Sender: FDA-Public Use
  Company Number: None

PATIENT
  Age: 64 Year
  Sex: Female

DRUGS (11)
  1. TEMOZOLOMIDE [Suspect]
     Active Substance: TEMOZOLOMIDE
     Indication: Brain neoplasm malignant
     Dosage: FREQUENCY : DAILY;?
     Route: 048
     Dates: start: 20230117, end: 20240411
  2. ONDANSETRON [Concomitant]
  3. DEXAMETHASONE [Concomitant]
  4. DOCUSATE [Concomitant]
  5. FAMOTIDINE [Concomitant]
  6. LEVETIRACETAM [Concomitant]
  7. POLYETHYLENE GLYCOL 3350 [Concomitant]
  8. Senna [Concomitant]
  9. TYLENOL [Concomitant]
  10. VITAMIN D3 [Concomitant]
  11. XANAX [Concomitant]

REACTIONS (2)
  - Disease progression [None]
  - Brain neoplasm malignant [None]

NARRATIVE: CASE EVENT DATE: 20240411
